FAERS Safety Report 9384696 (Version 1)
Quarter: 2013Q3

REPORT INFORMATION
  Report Type: Spontaneous
  Country: US (occurrence: US)
  Receive Date: 20130705
  Receipt Date: 20130705
  Transmission Date: 20140515
  Serious: No
  Sender: FDA-Public Use
  Company Number: US-009507513-1306USA013364

PATIENT
  Age: 80 Year
  Sex: Female

DRUGS (4)
  1. DULERA [Suspect]
     Indication: CHRONIC OBSTRUCTIVE PULMONARY DISEASE
     Dosage: 200MCG/5MCG 2 PUFFS EVERY TWELVE HOURS
     Route: 055
     Dates: start: 201201
  2. DULERA [Suspect]
     Indication: ASTHMA
  3. DULERA [Suspect]
     Indication: LUNG INFECTION
  4. ALBUTEROL [Concomitant]

REACTIONS (4)
  - Mineral deficiency [Not Recovered/Not Resolved]
  - Tooth demineralisation [Not Recovered/Not Resolved]
  - Ecchymosis [Not Recovered/Not Resolved]
  - Tooth extraction [Unknown]
